FAERS Safety Report 5290705-5 (Version None)
Quarter: 2007Q2

REPORT INFORMATION
  Report Type: 
  Country: None (occurrence: None)
  Receive Date: 20070405
  Receipt Date: 20070405
  Transmission Date: 20071010
  Serious: Yes (Hospitalization)
  Sender: FDA-Public Use
  Company Number: None

PATIENT
  Age: 52 Year
  Sex: Female

DRUGS (14)
  1. IFOSFAMIDE [Suspect]
     Indication: NON-HODGKIN'S LYMPHOMA
     Dosage: 5 GM/M2 IV
     Route: 042
     Dates: start: 20070207, end: 20070208
  2. ATIVAN [Concomitant]
  3. COMPAZINE [Concomitant]
  4. SENNA [Concomitant]
  5. DOCUSATE [Concomitant]
  6. ONDANSETRON [Concomitant]
  7. METHYLPREDNISOLONE 16MG TAB [Concomitant]
  8. CEFEPIME [Concomitant]
  9. HYDROMORPHONE HCL [Concomitant]
  10. MOM [Concomitant]
  11. TEMAZEPAM [Concomitant]
  12. ETOPOSIDE [Concomitant]
  13. RITUXIMAB [Concomitant]
  14. CARBOPLATIN [Concomitant]

REACTIONS (2)
  - CONFUSIONAL STATE [None]
  - DRUG TOXICITY [None]
